FAERS Safety Report 24533175 (Version 1)
Quarter: 2024Q4

REPORT INFORMATION
  Report Type: Spontaneous
  Country: GR (occurrence: None)
  Receive Date: 20241017
  Receipt Date: 20241017
  Transmission Date: 20250115
  Serious: Yes (Hospitalization, Disabling, Other)
  Sender: Public
  Company Number: None

PATIENT
  Age: 35 Year
  Sex: Female
  Weight: 62 kg

DRUGS (4)
  1. LEXAPRO [Suspect]
     Active Substance: ESCITALOPRAM OXALATE
  2. ASIAN GINSENG [Suspect]
     Active Substance: ASIAN GINSENG
     Indication: Anxiety
     Dosage: OTHER FREQUENCY : IN THE MORNING;?
     Dates: start: 20150510, end: 20220202
  3. OMEGA 3 [Concomitant]
     Active Substance: CAPSAICIN
  4. LOW VITAMIN D [Concomitant]

REACTIONS (9)
  - Dementia [None]
  - Brain injury [None]
  - Autonomic nervous system imbalance [None]
  - Amnesia [None]
  - Confusional state [None]
  - Illness [None]
  - Visual impairment [None]
  - CYP2D6 polymorphism [None]
  - Toxicity to various agents [None]

NARRATIVE: CASE EVENT DATE: 20220203
